FAERS Safety Report 4527025-X (Version None)
Quarter: 2004Q4

REPORT INFORMATION
  Report Type: 
  Country: None (occurrence: None)
  Receive Date: 20041213
  Receipt Date: 20041201
  Transmission Date: 20050328
  Serious: Yes (Death, Hospitalization)
  Sender: FDA-Public Use
  Company Number: 2004087280

PATIENT
  Age: 77 Year
  Sex: Male

DRUGS (1)
  1. CARDURAN (DOXAZOSIN) [Suspect]
     Indication: BENIGN PROSTATIC HYPERPLASIA
     Dosage: 4 MG (4 MG, 1 IN 1 D), ORAL
     Route: 048
     Dates: start: 20020801, end: 20040901

REACTIONS (7)
  - CARDIAC DISORDER [None]
  - CHOLELITHIASIS [None]
  - CONDITION AGGRAVATED [None]
  - HYPERTENSION [None]
  - MYOCARDIAL INFARCTION [None]
  - PROSTATE INFECTION [None]
  - RENAL DISORDER [None]
